FAERS Safety Report 5978567-1 (Version None)
Quarter: 2008Q4

REPORT INFORMATION
  Report Type: 
  Country: None (occurrence: None)
  Receive Date: 20081204
  Receipt Date: 20081203
  Transmission Date: 20090506
  Serious: Yes (Death, Life-Threatening, Hospitalization, Disabling)
  Sender: FDA-Public Use
  Company Number: A0758958A

PATIENT
  Age: 59 Year
  Sex: Male

DRUGS (2)
  1. COMBIVIR [Suspect]
     Indication: HIV INFECTION
     Dosage: 1TAB PER DAY
     Route: 048
  2. EPIVIR [Suspect]
     Indication: HIV INFECTION
     Dosage: 150MG PER DAY
     Route: 048

REACTIONS (1)
  - DEATH [None]
